FAERS Safety Report 19387025 (Version 3)
Quarter: 2021Q2

REPORT INFORMATION
  Report Type: Spontaneous
  Country: US (occurrence: US)
  Receive Date: 20210607
  Receipt Date: 20210623
  Transmission Date: 20210717
  Serious: No
  Sender: FDA-Public Use
  Company Number: US-SA-2021SA171768

PATIENT
  Sex: Female

DRUGS (1)
  1. NASACORT ALLERGY 24HR [Suspect]
     Active Substance: TRIAMCINOLONE ACETONIDE
     Indication: RHINITIS ALLERGIC
     Dosage: DRUG INTERVAL DOSAGE : 1 TIME DAILY DRUG TREATMENT DURATION: 6?7 DAYS
     Route: 045

REACTIONS (3)
  - Epistaxis [Unknown]
  - Application site erythema [Unknown]
  - Application site pain [Unknown]
